FAERS Safety Report 4290345-0 (Version None)
Quarter: 2004Q1

REPORT INFORMATION
  Report Type: 
  Country: None (occurrence: None)
  Receive Date: 20040209
  Receipt Date: 20040205
  Transmission Date: 20041129
  Serious: Yes (Other)
  Sender: FDA-Public Use
  Company Number: 2002-08-0364

PATIENT
  Age: 37 Year
  Sex: Female

DRUGS (1)
  1. THALOMID [Suspect]
     Indication: MULTIPLE MYELOMA
     Dosage: 250 MG, QD, ORAL
     Route: 048
     Dates: start: 20020118

REACTIONS (11)
  - BLOOD CREATININE INCREASED [None]
  - BLOOD GLUCOSE INCREASED [None]
  - BLOOD HUMAN CHORIONIC GONADOTROPIN INCREASED [None]
  - BLOOD LUTEINISING HORMONE INCREASED [None]
  - CALCINOSIS [None]
  - CROSS SENSITIVITY REACTION [None]
  - ENDOMETRIAL DISORDER [None]
  - FALSE POSITIVE LABORATORY RESULT [None]
  - OVARIAN CYST [None]
  - PCO2 DECREASED [None]
  - POSTMENOPAUSE [None]
